FAERS Safety Report 6925042-3 (Version None)
Quarter: 2010Q3

REPORT INFORMATION
  Report Type: 
  Country: None (occurrence: None)
  Receive Date: 20100816
  Receipt Date: 20100811
  Transmission Date: 20110219
  Serious: Yes (Other)
  Sender: FDA-Public Use
  Company Number: JP-BRACCO-003863

PATIENT
  Age: 74 Year
  Sex: Male

DRUGS (2)
  1. IOPAMIDOL [Suspect]
     Indication: COLON CANCER
     Route: 042
     Dates: start: 20100803, end: 20100803
  2. IOPAMIDOL [Suspect]
     Indication: COMPUTERISED TOMOGRAM
     Route: 042
     Dates: start: 20100803, end: 20100803

REACTIONS (1)
  - STEVENS-JOHNSON SYNDROME [None]
